FAERS Safety Report 13160055 (Version 1)
Quarter: 2017Q1

REPORT INFORMATION
  Report Type: Spontaneous
  Country: IT (occurrence: IT)
  Receive Date: 20170127
  Receipt Date: 20170127
  Transmission Date: 20170428
  Serious: Yes (Other)
  Sender: FDA-Public Use
  Company Number: IT-PFIZER INC-2017039645

PATIENT
  Age: 31 Year
  Sex: Female

DRUGS (1)
  1. RELPAX [Suspect]
     Active Substance: ELETRIPTAN HYDROBROMIDE
     Indication: MIGRAINE
     Dosage: UNK
     Dates: start: 20160224, end: 20160224

REACTIONS (2)
  - Paraesthesia [Recovering/Resolving]
  - Hemianaesthesia [Recovering/Resolving]

NARRATIVE: CASE EVENT DATE: 20160224
